FAERS Safety Report 10804807 (Version 1)
Quarter: 2015Q1

REPORT INFORMATION
  Report Type: Report from Study
  Country: US (occurrence: US)
  Receive Date: 20150217
  Receipt Date: 20150217
  Transmission Date: 20150721
  Serious: No
  Sender: FDA-Public Use
  Company Number: US-ABBVIE-14K-163-1248892-00

PATIENT
  Age: 55 Year
  Sex: Male

DRUGS (5)
  1. HUMIRA [Suspect]
     Active Substance: ADALIMUMAB
     Indication: PSORIASIS
     Dates: start: 20140523, end: 20140523
  2. HUMIRA [Suspect]
     Active Substance: ADALIMUMAB
     Dates: start: 20140530
  3. CLOBETASOL [Concomitant]
     Active Substance: CLOBETASOL
     Indication: PRODUCT USED FOR UNKNOWN INDICATION
  4. METHOTREXATE [Suspect]
     Active Substance: METHOTREXATE
     Indication: PRODUCT USED FOR UNKNOWN INDICATION
     Dates: start: 20140617, end: 20140618
  5. ANTIBIOTICS [Concomitant]
     Active Substance: UNSPECIFIED INGREDIENT
     Indication: PRODUCT USED FOR UNKNOWN INDICATION

REACTIONS (11)
  - Ingrowing nail [Recovering/Resolving]
  - Scab [Unknown]
  - Rash papular [Unknown]
  - Thermal burn [Not Recovered/Not Resolved]
  - Psoriasis [Recovering/Resolving]
  - Sinus disorder [Recovered/Resolved]
  - Wound secretion [Recovered/Resolved]
  - Drug ineffective [Unknown]
  - Skin burning sensation [Not Recovered/Not Resolved]
  - Infrequent bowel movements [Not Recovered/Not Resolved]
  - Drug ineffective [Not Recovered/Not Resolved]

NARRATIVE: CASE EVENT DATE: 2014
